FAERS Safety Report 8607996-2 (Version None)
Quarter: 2012Q3

REPORT INFORMATION
  Report Type: 
  Country: None (occurrence: None)
  Receive Date: 20120807
  Receipt Date: 20120727
  Transmission Date: 20120928
  Serious: Yes (Other)
  Sender: FDA-Public Use
  Company Number: FR-1192871

PATIENT
  Age: 10 Year
  Sex: Female
  Weight: 38 kg

DRUGS (1)
  1. CYCLOPENTOLATE HCL [Suspect]
     Indication: OPHTHALMOLOGICAL EXAMINATION
     Dosage: (1 GTT 1X/10 MINUTES OU OPHTHALMIC)
     Route: 047
     Dates: start: 20120620

REACTIONS (3)
  - BLINDNESS TRANSIENT [None]
  - ATRIOVENTRICULAR BLOCK [None]
  - HALLUCINATION, VISUAL [None]
